FAERS Safety Report 9426307 (Version 11)
Quarter: 2014Q2

REPORT INFORMATION
  Report Type: Report from Study
  Country: US (occurrence: US)
  Receive Date: 20130730
  Receipt Date: 20140428
  Transmission Date: 20141212
  Serious: Yes (Hospitalization)
  Sender: FDA-Public Use
  Company Number: US-BRISTOL-MYERS SQUIBB COMPANY-19119627

PATIENT
  Age: 61 Year
  Sex: Male
  Weight: 79.7 kg

DRUGS (14)
  1. IPILIMUMAB [Suspect]
     Indication: MALIGNANT MELANOMA
     Dosage: RECEIVED UNTIL 19JUN13
     Route: 042
     Dates: start: 20130407, end: 20130619
  2. HYDROCORTISONE [Concomitant]
     Route: 048
     Dates: start: 20130630
  3. LEVOTHYROXINE [Concomitant]
     Route: 048
     Dates: start: 20130626
  4. COMPAZINE [Concomitant]
     Dosage: 24JUN13:30MG
     Route: 048
     Dates: start: 20130624
  5. ASPIRIN [Concomitant]
     Dosage: 1DF: 2 TABS
     Dates: start: 20121224
  6. KEPPRA [Concomitant]
     Dates: start: 20121224
  7. MILK OF MAGNESIA [Concomitant]
     Dates: start: 20121224
  8. PANTOPRAZOLE [Concomitant]
     Dates: start: 20121224
  9. DOXEPIN [Concomitant]
     Dates: start: 20130619
  10. HEPARIN [Concomitant]
  11. NYSTATIN [Concomitant]
  12. LOPERAMIDE [Concomitant]
  13. DOCUSATE [Concomitant]
  14. LIOTHYRONINE [Concomitant]

REACTIONS (1)
  - Fall [Recovered/Resolved]
